FAERS Safety Report 5126959-5 (Version None)
Quarter: 2006Q4

REPORT INFORMATION
  Report Type: 
  Country: None (occurrence: None)
  Receive Date: 20061013
  Receipt Date: 20061002
  Transmission Date: 20070319
  Serious: Yes (Hospitalization, Other)
  Sender: FDA-Public Use
  Company Number: US-AMGEN-US195605

PATIENT
  Sex: Female

DRUGS (1)
  1. ENBREL [Suspect]
     Indication: JUVENILE ARTHRITIS
     Route: 058
     Dates: start: 19990501

REACTIONS (9)
  - BLISTER [None]
  - HIP ARTHROPLASTY [None]
  - INCISION SITE COMPLICATION [None]
  - INCISION SITE HAEMORRHAGE [None]
  - KNEE OPERATION [None]
  - RED BLOOD CELL COUNT DECREASED [None]
  - WHITE BLOOD CELL COUNT DECREASED [None]
  - WOUND CLOSURE [None]
  - WOUND DEBRIDEMENT [None]
